FAERS Safety Report 25108804 (Version 2)
Quarter: 2025Q2

REPORT INFORMATION
  Report Type: Report from Study
  Country: US (occurrence: US)
  Receive Date: 20250322
  Receipt Date: 20250422
  Transmission Date: 20250716
  Serious: Yes (Hospitalization)
  Sender: JAZZ
  Company Number: US-JAZZ PHARMACEUTICALS-2025-US-006893

PATIENT
  Age: 1 Year
  Sex: Male

DRUGS (2)
  1. EPIDIOLEX [Suspect]
     Active Substance: CANNABIDIOL
     Indication: Product used for unknown indication
     Dosage: 1 MILLILITER, BID
  2. EPIDIOLEX [Suspect]
     Active Substance: CANNABIDIOL
     Dosage: 1 MILLILITER, BID
     Route: 048
     Dates: start: 20250317

REACTIONS (2)
  - Seizure [Not Recovered/Not Resolved]
  - Seizure [Unknown]

NARRATIVE: CASE EVENT DATE: 20250314
